FAERS Safety Report 9590502 (Version 1)
Quarter: 2013Q4

REPORT INFORMATION
  Report Type: Spontaneous
  Country: US (occurrence: US)
  Receive Date: 20131003
  Receipt Date: 20131003
  Transmission Date: 20140711
  Serious: No
  Sender: FDA-Public Use
  Company Number: US-AMGEN-USASP2012077941

PATIENT
  Age: 56 Year
  Sex: Male
  Weight: 99.77 kg

DRUGS (7)
  1. ENBREL [Suspect]
     Indication: PSORIASIS
     Dosage: 50 MG, 2 TIMES/WK
     Route: 058
  2. VENTOLIN HFA [Concomitant]
     Dosage: UNK
  3. ADVAIR [Concomitant]
     Dosage: 100/50
  4. BYSTOLIC [Concomitant]
     Dosage: 2.5 MG, UNK
  5. SPIRIVA HANDIHALER [Concomitant]
     Dosage: UNK
  6. LOSARTAN [Concomitant]
     Dosage: UNK
  7. POTASSIUM [Concomitant]
     Dosage: 100 MG, UNK

REACTIONS (4)
  - Injection site rash [Unknown]
  - Injection site swelling [Unknown]
  - Injection site erythema [Unknown]
  - Injection site reaction [Unknown]
